FAERS Safety Report 6533764-1 (Version None)
Quarter: 2010Q1

REPORT INFORMATION
  Report Type: 
  Country: None (occurrence: None)
  Receive Date: 20100111
  Receipt Date: 20090401
  Transmission Date: 20100710
  Serious: No
  Sender: FDA-Public Use
  Company Number: US-ABBOTT-09P-163-0566461-00

PATIENT
  Sex: Female
  Weight: 181.6 kg

DRUGS (13)
  1. VICODIN [Suspect]
     Indication: PAIN IN EXTREMITY
     Dates: start: 20090101, end: 20090301
  2. VICODIN [Suspect]
     Indication: LYMPHOEDEMA
  3. LASIX [Concomitant]
     Indication: OEDEMA PERIPHERAL
  4. ATIVAN [Concomitant]
     Indication: MUSCLE TIGHTNESS
  5. LEVOTHYROXINE SODIUM [Concomitant]
     Indication: HYPOTHYROIDISM
  6. CITALOPRAM [Concomitant]
     Indication: DEPRESSION
  7. KLOR-CON [Concomitant]
     Indication: MINERAL SUPPLEMENTATION
  8. FLUOXETINE [Concomitant]
     Indication: DEPRESSION
  9. PROVENTIL [Concomitant]
     Indication: DYSPNOEA
     Route: 055
  10. PROVENTIL [Concomitant]
     Indication: CARDIAC FAILURE CONGESTIVE
  11. TRAMADOL HCL [Concomitant]
     Indication: LYMPHOEDEMA
     Dates: start: 20090301
  12. TRAMADOL HCL [Concomitant]
     Indication: PAIN
  13. RESTORIL [Concomitant]
     Indication: INSOMNIA

REACTIONS (1)
  - DRUG INEFFECTIVE [None]
